FAERS Safety Report 8161008-6 (Version None)
Quarter: 2012Q1

REPORT INFORMATION
  Report Type: 
  Country: None (occurrence: None)
  Receive Date: 20120224
  Receipt Date: 20120216
  Transmission Date: 20120608
  Serious: Yes (Hospitalization)
  Sender: FDA-Public Use
  Company Number: ZA-GE HEALTHCARE MEDICAL DIAGNOSTICS-VISP-NO-1202S-0069

PATIENT
  Age: 41 Year
  Sex: Male

DRUGS (1)
  1. VISIPAQUE [Suspect]
     Indication: PRODUCT USED FOR UNKNOWN INDICATION
     Route: 065
     Dates: start: 20120213, end: 20120213

REACTIONS (5)
  - GENERAL PHYSICAL CONDITION ABNORMAL [None]
  - LEUKOCYTOSIS [None]
  - PYREXIA [None]
  - C-REACTIVE PROTEIN INCREASED [None]
  - CHILLS [None]
